FAERS Safety Report 5857876-0 (Version None)
Quarter: 2008Q3

REPORT INFORMATION
  Report Type: 
  Country: None (occurrence: None)
  Receive Date: 20080826
  Receipt Date: 20080530
  Transmission Date: 20090109
  Serious: No
  Sender: FDA-Public Use
  Company Number: US-TEVA-169481USA

PATIENT
  Sex: Male
  Weight: 82.446 kg

DRUGS (6)
  1. AZILECT [Suspect]
     Indication: PARKINSON'S DISEASE
     Route: 048
     Dates: start: 20080324
  2. HYDROCORTISONE [Concomitant]
  3. WARFARIN SODIUM [Concomitant]
  4. LEVOTHYROXINE [Concomitant]
  5. SOTALOL HYDROCHLORIDE [Concomitant]
  6. MACROGOL [Concomitant]

REACTIONS (2)
  - FOOD INTERACTION [None]
  - LABILE BLOOD PRESSURE [None]
